FAERS Safety Report 4778766-0 (Version None)
Quarter: 2005Q3

REPORT INFORMATION
  Report Type: 
  Country: None (occurrence: None)
  Receive Date: 20050926
  Receipt Date: 20050916
  Transmission Date: 20060218
  Serious: Yes (Hospitalization)
  Sender: FDA-Public Use
  Company Number: PHBS2005AR13847

PATIENT
  Age: 39 Year
  Sex: Female

DRUGS (3)
  1. TEGRETOL [Suspect]
     Indication: ANXIETY
     Dosage: 100 MG, BID
     Dates: start: 20050401
  2. FENERGAN [Concomitant]
     Dosage: 25 MG, QD
     Route: 048
  3. CLONAZEPAM [Concomitant]
     Dosage: UNK, BID
     Route: 048

REACTIONS (8)
  - ANAEMIA [None]
  - HEADACHE [None]
  - HEPATITIS TOXIC [None]
  - PAIN [None]
  - PLATELET COUNT INCREASED [None]
  - TACHYCARDIA [None]
  - TREMOR [None]
  - WHITE BLOOD CELL COUNT INCREASED [None]
